FAERS Safety Report 16020518 (Version 2)
Quarter: 2019Q1

REPORT INFORMATION
  Report Type: Report from Study
  Country: None (occurrence: BE)
  Receive Date: 20190301
  Receipt Date: 20190314
  Transmission Date: 20190418
  Serious: Yes (Other)
  Sender: FDA-Public Use
  Company Number: BE-ABBVIE-19S-013-2643827-00

PATIENT
  Sex: Male

DRUGS (7)
  1. REQUIP [Concomitant]
     Active Substance: ROPINIROLE HYDROCHLORIDE
     Indication: PRODUCT USED FOR UNKNOWN INDICATION
     Dates: start: 20180123
  2. DUODOPA [Suspect]
     Active Substance: CARBIDOPA\LEVODOPA
     Indication: PARKINSON^S DISEASE
     Route: 050
     Dates: start: 20100202, end: 20100205
  3. PROLOPA 250 [Concomitant]
     Indication: PARKINSON^S DISEASE
     Dosage: FORM STRENGTH: 200MG/50MG; UNIT DOSE: 0.5 TABLET
     Route: 048
  4. DUODOPA [Suspect]
     Active Substance: CARBIDOPA\LEVODOPA
     Dosage: MD=0ML CD=4.4ML/HR DURING 16HRS  ED=3ML ND=4.1 ML/HR DURING 8HRS
     Route: 050
     Dates: start: 20100205, end: 20100210
  5. PROLOPA 250 [Concomitant]
     Dosage: FORM STRENGTH: 200MG/50MG; ?UNIT DOSE: 0.5 UNIT
  6. DUODOPA [Suspect]
     Active Substance: CARBIDOPA\LEVODOPA
     Dosage: DOSES CONTINUOUSLY MONITORED AND ADAPTED
     Route: 050
     Dates: start: 20100210, end: 20180417
  7. DUODOPA [Suspect]
     Active Substance: CARBIDOPA\LEVODOPA
     Dosage: MD=0ML CD=3.5ML/HR DURING 16HRS  ED=2ML ND=2.9ML/HR DURING 8HRS
     Route: 050
     Dates: start: 20180417

REACTIONS (6)
  - Intervertebral disc protrusion [Unknown]
  - Dislocation of vertebra [Unknown]
  - Gait inability [Recovered/Resolved]
  - Decubitus ulcer [Unknown]
  - Back pain [Not Recovered/Not Resolved]
  - Pain in extremity [Recovered/Resolved]
